FAERS Safety Report 17047698 (Version 1)
Quarter: 2019Q4

REPORT INFORMATION
  Report Type: Spontaneous
  Country: IT (occurrence: IT)
  Receive Date: 20191119
  Receipt Date: 20191119
  Transmission Date: 20200122
  Serious: Yes (Hospitalization)
  Sender: FDA-Public Use
  Company Number: IT-PFIZER INC-2019492965

PATIENT
  Age: 30 Year
  Sex: Male

DRUGS (3)
  1. TRIMETOPRIM + SULFAMETOXAZOL [Suspect]
     Active Substance: SULFAMETHOXAZOLE\TRIMETHOPRIM
     Dosage: 16 DF, TOTAL
     Route: 048
  2. MEDROL [Suspect]
     Active Substance: METHYLPREDNISOLONE
     Dosage: 160 MG, TOTAL (10 TABLETS)
     Route: 048
  3. VERTISERC [Suspect]
     Active Substance: BETAHISTINE HYDROCHLORIDE
     Dosage: 360 MG, TOTAL (15 TABLETS)
     Route: 048

REACTIONS (3)
  - Hypertension [Unknown]
  - Nausea [Unknown]
  - Substance abuse [Unknown]

NARRATIVE: CASE EVENT DATE: 20190508
